FAERS Safety Report 9056702 (Version 2)
Quarter: 2013Q1

REPORT INFORMATION
  Report Type: Spontaneous
  Country: US (occurrence: US)
  Receive Date: 20130204
  Receipt Date: 20130329
  Transmission Date: 20140127
  Serious: Yes (Hospitalization, Disabling, Other)
  Sender: FDA-Public Use
  Company Number: US-009507513-1301USA014625

PATIENT
  Sex: Female
  Weight: 58.5 kg

DRUGS (1)
  1. NUVARING [Suspect]
     Indication: CONTRACEPTION
     Dosage: UNK
     Route: 067
     Dates: start: 2005, end: 2008

REACTIONS (16)
  - Headache [Unknown]
  - Pulmonary embolism [Unknown]
  - Deep vein thrombosis [Unknown]
  - Varicose vein [Unknown]
  - High frequency ablation [Unknown]
  - Dyspnoea [Unknown]
  - Syncope [Unknown]
  - Pulmonary hypertension [Unknown]
  - Mitral valve prolapse [Unknown]
  - Anxiety [Unknown]
  - Thrombophlebitis superficial [Unknown]
  - Varicose vein operation [Unknown]
  - Hypokalaemia [Recovered/Resolved]
  - Orthostatic hypotension [Unknown]
  - Deep vein thrombosis [Unknown]
  - Heart rate irregular [Unknown]
